FAERS Safety Report 25815693 (Version 2)
Quarter: 2025Q4

REPORT INFORMATION
  Report Type: Spontaneous
  Country: MX (occurrence: MX)
  Receive Date: 20250918
  Receipt Date: 20251002
  Transmission Date: 20260117
  Serious: Yes (Hospitalization, Other)
  Sender: ROCHE
  Company Number: MX-ROCHE-10000388900

PATIENT
  Age: 30 Year
  Sex: Female

DRUGS (2)
  1. OCRELIZUMAB [Suspect]
     Active Substance: OCRELIZUMAB
     Indication: Product used for unknown indication
     Dosage: FREQUENCY WAS NOT REPORTED
     Route: 042
     Dates: start: 2021
  2. AZITHROMYCIN [Suspect]
     Active Substance: AZITHROMYCIN
     Indication: Influenza
     Route: 048
     Dates: start: 20250905, end: 20250907

REACTIONS (6)
  - Abdominal pain upper [Unknown]
  - Cholecystitis [Unknown]
  - Transaminases increased [Unknown]
  - Cholecystectomy [Unknown]
  - Influenza [Unknown]
  - Product quality issue [Unknown]
